FAERS Safety Report 5133256-0 (Version None)
Quarter: 2006Q4

REPORT INFORMATION
  Report Type: 
  Country: None (occurrence: None)
  Receive Date: 20061018
  Receipt Date: 20061003
  Transmission Date: 20070319
  Serious: Yes (Other)
  Sender: FDA-Public Use
  Company Number: 2006JP003672

PATIENT
  Age: 28 Year
  Sex: Male

DRUGS (4)
  1. PROGRAF [Suspect]
     Indication: RENAL TRANSPLANT
  2. AZATHIOPRINE [Concomitant]
  3. CYCLOPHOSPHAMIDE [Concomitant]
  4. METHYLPREDNISOLONE [Concomitant]

REACTIONS (2)
  - GASTROINTESTINAL ULCER [None]
  - LYMPHOPROLIFERATIVE DISORDER [None]
